FAERS Safety Report 26160932 (Version 1)
Quarter: 2025Q4

REPORT INFORMATION
  Report Type: Spontaneous
  Country: IN (occurrence: IN)
  Receive Date: 20251216
  Receipt Date: 20251216
  Transmission Date: 20260118
  Serious: Yes (Other)
  Sender: STRIDES
  Company Number: None

PATIENT
  Age: 60 Year
  Sex: Male

DRUGS (1)
  1. PREDNISOLONE [Suspect]
     Active Substance: PREDNISOLONE
     Indication: Demyelination
     Dosage: 40 MILLIGRAM, 1 DAY
     Route: 065
     Dates: start: 2024

REACTIONS (2)
  - False negative investigation result [Unknown]
  - Off label use [Unknown]
